FAERS Safety Report 4457466-0 (Version None)
Quarter: 2004Q3

REPORT INFORMATION
  Report Type: 
  Country: None (occurrence: None)
  Receive Date: 20040922
  Receipt Date: 20040909
  Transmission Date: 20050211
  Serious: Yes (Hospitalization, Other)
  Sender: FDA-Public Use
  Company Number: 2004064625

PATIENT
  Sex: Male
  Weight: 68.9467 kg

DRUGS (5)
  1. NORVASC [Suspect]
     Indication: BLOOD PRESSURE INCREASED
     Dosage: 2.5 MG (2.5 MG, 1 IN 1 D), ORAL
     Route: 048
     Dates: start: 20000101
  2. VIAGRA [Suspect]
     Indication: ERECTILE DYSFUNCTION
     Dosage: (50MG), ORAL
     Route: 048
     Dates: start: 20020101, end: 20020101
  3. SOTALOL HCL [Concomitant]
  4. WARFARIN (WARFARIN) [Concomitant]
  5. DIGOXIN [Concomitant]

REACTIONS (7)
  - ARRHYTHMIA [None]
  - BLOOD PRESSURE DECREASED [None]
  - BLOOD PRESSURE INADEQUATELY CONTROLLED [None]
  - DIZZINESS [None]
  - ERECTILE DYSFUNCTION [None]
  - FATIGUE [None]
  - HYPERTENSION [None]
